FAERS Safety Report 7560764-5 (Version None)
Quarter: 2011Q2

REPORT INFORMATION
  Report Type: 
  Country: None (occurrence: None)
  Receive Date: 20110621
  Receipt Date: 20100609
  Transmission Date: 20111010
  Serious: No
  Sender: FDA-Public Use
  Company Number: US-ASTRAZENECA-2010SE26775

PATIENT
  Sex: Female

DRUGS (2)
  1. ATACAND [Suspect]
     Route: 048
  2. ZESTRIL [Suspect]
     Route: 048

REACTIONS (4)
  - JOINT SWELLING [None]
  - SWELLING [None]
  - COUGH [None]
  - FLUID RETENTION [None]
